FAERS Safety Report 18097967 (Version 1)
Quarter: 2020Q3

REPORT INFORMATION
  Report Type: Spontaneous
  Country: US (occurrence: US)
  Receive Date: 20200731
  Receipt Date: 20200731
  Transmission Date: 20201103
  Serious: Yes (Death)
  Sender: FDA-Public Use
  Company Number: None

PATIENT
  Age: 77 Year
  Sex: Female
  Weight: 79 kg

DRUGS (22)
  1. NITROGLYCERIN. [Concomitant]
     Active Substance: NITROGLYCERIN
  2. PREDNISONE. [Concomitant]
     Active Substance: PREDNISONE
  3. BACTIRM DS [Concomitant]
  4. BUMETANIDE. [Concomitant]
     Active Substance: BUMETANIDE
  5. PHOSPHORUS SUPPLEMENT [Concomitant]
     Active Substance: PHOSPHORUS
  6. BENADRYL [Concomitant]
     Active Substance: DIPHENHYDRAMINE HYDROCHLORIDE
  7. LUMIGAN [Concomitant]
     Active Substance: BIMATOPROST
  8. MAGNESIUM OXIDE. [Concomitant]
     Active Substance: MAGNESIUM OXIDE
  9. LEUKERAN [Suspect]
     Active Substance: CHLORAMBUCIL
     Indication: CHRONIC LYMPHOCYTIC LEUKAEMIA
     Dosage: ?          OTHER FREQUENCY:EVERY 2 WEEKS;?
     Route: 048
     Dates: start: 20200417, end: 20200730
  10. LOPERAMIDE [Concomitant]
     Active Substance: LOPERAMIDE
  11. PANTOPRAZOLE [Concomitant]
     Active Substance: PANTOPRAZOLE
  12. ADVAIR HFA [Concomitant]
     Active Substance: FLUTICASONE PROPIONATE\SALMETEROL XINAFOATE
  13. ALLOPURINOL. [Concomitant]
     Active Substance: ALLOPURINOL
  14. CYANOCABALAMIN [Concomitant]
  15. METOPROLOL SUCCINATE. [Concomitant]
     Active Substance: METOPROLOL SUCCINATE
  16. ONDANSETRON [Concomitant]
     Active Substance: ONDANSETRON
  17. BREO ELLIPTA [Concomitant]
     Active Substance: FLUTICASONE FUROATE\VILANTEROL TRIFENATATE
  18. ACYCLOVIR. [Concomitant]
     Active Substance: ACYCLOVIR
  19. DORZOLAMIDE [Concomitant]
     Active Substance: DORZOLAMIDE
  20. LEVOTHYROXINE. [Concomitant]
     Active Substance: LEVOTHYROXINE
  21. PROCHLORPERAZINE. [Concomitant]
     Active Substance: PROCHLORPERAZINE
  22. LISINOPRIL. [Concomitant]
     Active Substance: LISINOPRIL

REACTIONS (1)
  - Death [None]

NARRATIVE: CASE EVENT DATE: 20200730
